FAERS Safety Report 11891396 (Version 1)
Quarter: 2016Q1

REPORT INFORMATION
  Report Type: Spontaneous
  Country: US (occurrence: None)
  Receive Date: 20160105
  Receipt Date: 20160105
  Transmission Date: 20160526
  Serious: No
  Sender: FDA-Public Use
  Company Number: None

PATIENT
  Age: 68 Year
  Sex: Female

DRUGS (1)
  1. CAPECITABINE 500MG TEVA [Suspect]
     Active Substance: CAPECITABINE
     Indication: COLON CANCER
     Dosage: BID X 14 DAYS ON AND 7 DAYS OFF
     Route: 048
     Dates: start: 20151120

REACTIONS (7)
  - Vomiting [None]
  - Lethargy [None]
  - Alopecia [None]
  - Diarrhoea [None]
  - Nausea [None]
  - Dyspepsia [None]
  - Procedural site reaction [None]

NARRATIVE: CASE EVENT DATE: 20151201
